FAERS Safety Report 15226600 (Version 1)
Quarter: 2018Q3

REPORT INFORMATION
  Report Type: Spontaneous
  Country: JP (occurrence: JP)
  Receive Date: 20180801
  Receipt Date: 20180801
  Transmission Date: 20181010
  Serious: Yes (Other)
  Sender: FDA-Public Use
  Company Number: PHHY2018JP053908

PATIENT
  Age: 68 Year
  Sex: Male
  Weight: 66 kg

DRUGS (14)
  1. AMPHOTERICIN B. [Concomitant]
     Active Substance: AMPHOTERICIN B
     Indication: PNEUMONIA
  2. GAMMA GLOBULIN [Concomitant]
     Active Substance: IMMUNE GLOBULIN NOS
     Indication: PNEUMONIA
  3. BORTEZOMIB. [Suspect]
     Active Substance: BORTEZOMIB
     Indication: PNEUMONIA
  4. MEROPENEM. [Concomitant]
     Active Substance: MEROPENEM
     Indication: PYREXIA
     Route: 065
  5. MEROPENEM. [Concomitant]
     Active Substance: MEROPENEM
     Indication: PNEUMONIA
  6. DORIPENEM. [Concomitant]
     Active Substance: DORIPENEM
     Indication: PNEUMONIA
  7. DEXAMETHASONE. [Suspect]
     Active Substance: DEXAMETHASONE
     Indication: PLASMA CELL MYELOMA
     Route: 065
  8. DORIPENEM. [Concomitant]
     Active Substance: DORIPENEM
     Indication: PYREXIA
     Dosage: UNK
     Route: 065
  9. PIPERACILLIN [Concomitant]
     Active Substance: PIPERACILLIN
     Indication: PYREXIA
     Route: 065
  10. AMPHOTERICIN B. [Concomitant]
     Active Substance: AMPHOTERICIN B
     Indication: PYREXIA
     Route: 065
  11. BORTEZOMIB. [Suspect]
     Active Substance: BORTEZOMIB
     Indication: PLASMA CELL MYELOMA
     Route: 065
  12. GAMMA GLOBULIN [Concomitant]
     Active Substance: IMMUNE GLOBULIN NOS
     Indication: PYREXIA
     Route: 065
  13. PIPERACILLIN [Concomitant]
     Active Substance: PIPERACILLIN
     Indication: PNEUMONIA
  14. DEXAMETHASONE. [Suspect]
     Active Substance: DEXAMETHASONE
     Indication: PNEUMONIA

REACTIONS (4)
  - Plasma cell myeloma [Unknown]
  - Pneumonia [Unknown]
  - Acute respiratory distress syndrome [Unknown]
  - Product use in unapproved indication [Unknown]
